FAERS Safety Report 4511656-7 (Version None)
Quarter: 2004Q4

REPORT INFORMATION
  Report Type: 
  Country: None (occurrence: None)
  Receive Date: 20041129
  Receipt Date: 20041028
  Transmission Date: 20050328
  Serious: No
  Sender: FDA-Public Use
  Company Number: US-BRISTOL-MYERS SQUIBB COMPANY-12749479

PATIENT
  Age: 65 Year
  Sex: Male

DRUGS (6)
  1. ABILIFY [Suspect]
     Indication: DEPRESSION
  2. AMIODARONE HCL [Concomitant]
  3. HYDROCHLOROTHIAZIDE [Concomitant]
  4. PROTONIX [Concomitant]
  5. ASPIRIN [Concomitant]
  6. COLACE [Concomitant]

REACTIONS (5)
  - ACCIDENTAL OVERDOSE [None]
  - CONFUSIONAL STATE [None]
  - DIZZINESS [None]
  - MEDICATION ERROR [None]
  - VOMITING [None]
